FAERS Safety Report 12967805 (Version 2)
Quarter: 2016Q4

REPORT INFORMATION
  Report Type: Spontaneous
  Country: US (occurrence: US)
  Receive Date: 20161123
  Receipt Date: 20161227
  Transmission Date: 20170207
  Serious: No
  Sender: FDA-Public Use
  Company Number: US-PFIZER INC-2016536398

PATIENT
  Age: 8 Decade
  Sex: Female

DRUGS (1)
  1. SUTENT [Suspect]
     Active Substance: SUNITINIB MALATE
     Indication: PRIMITIVE NEUROECTODERMAL TUMOUR
     Dosage: 37.5 MG, UNK

REACTIONS (1)
  - Amnesia [Unknown]
